FAERS Safety Report 7078622-1 (Version None)
Quarter: 2010Q4

REPORT INFORMATION
  Report Type: 
  Country: None (occurrence: None)
  Receive Date: 20101102
  Receipt Date: 20101029
  Transmission Date: 20110411
  Serious: Yes (Hospitalization, Other)
  Sender: FDA-Public Use
  Company Number: DE-ELI_LILLY_AND_COMPANY-DE201010004452

PATIENT
  Age: 69 Year
  Sex: Female
  Weight: 83.1 kg

DRUGS (9)
  1. BYETTA [Suspect]
     Dosage: UNK, UNKNOWN
     Route: 058
     Dates: start: 20071025, end: 20071119
  2. BYETTA [Suspect]
     Dosage: 10 UG, 2/D
     Route: 058
     Dates: start: 20071120, end: 20100101
  3. METFORMIN [Concomitant]
     Dosage: 1000 MG, UNK
  4. CARMEN [Concomitant]
     Dosage: 20 MG, UNK
  5. DIOVAN [Concomitant]
     Dosage: 160 MG, UNK
  6. ASPIRIN [Concomitant]
     Dosage: 100 MG, UNK
  7. MOXONIDIN [Concomitant]
     Dosage: 0.3 MG, UNK
  8. ALLOPURINOL [Concomitant]
     Dosage: 100 MG, UNK
  9. TORSEMIDE [Concomitant]
     Dosage: 10 MG, UNK

REACTIONS (3)
  - CHOLECYSTITIS [None]
  - PANCREATIC CARCINOMA METASTATIC [None]
  - WEIGHT DECREASED [None]
